FAERS Safety Report 7106979-1 (Version None)
Quarter: 2010Q4

REPORT INFORMATION
  Report Type: 
  Country: None (occurrence: None)
  Receive Date: 20101116
  Receipt Date: 20101104
  Transmission Date: 20110411
  Serious: No
  Sender: FDA-Public Use
  Company Number: US-ABBOTT-10P-163-0684057-00

PATIENT
  Sex: Female
  Weight: 65.83 kg

DRUGS (3)
  1. SIMCOR [Suspect]
     Indication: TRANSIENT ISCHAEMIC ATTACK
     Dates: start: 20100501
  2. SIMCOR [Suspect]
     Indication: BLOOD CHOLESTEROL INCREASED
  3. ATENOLOL [Concomitant]
     Indication: HYPERTENSION

REACTIONS (4)
  - FEELING HOT [None]
  - FLUSHING [None]
  - PRURITUS [None]
  - PRURITUS GENERALISED [None]
